FAERS Safety Report 15160790 (Version 2)
Quarter: 2018Q3

REPORT INFORMATION
  Report Type: Spontaneous
  Country: DK (occurrence: DK)
  Receive Date: 20180718
  Receipt Date: 20180727
  Transmission Date: 20181010
  Serious: Yes (Hospitalization)
  Sender: FDA-Public Use
  Company Number: DK-ANIPHARMA-2018-DK-000007

PATIENT
  Age: 45 Year
  Sex: Female

DRUGS (5)
  1. EPIRUBICIN [Suspect]
     Active Substance: EPIRUBICIN
     Dosage: 180.9 MG, EPIRUBICIN D. 04.11.2014, 25.11.2014 AND 16.12.2014
     Route: 042
     Dates: start: 201410, end: 201501
  2. ARIMIDEX [Suspect]
     Active Substance: ANASTROZOLE
     Indication: INVASIVE BREAST CARCINOMA
     Dosage: 1 MG
     Route: 048
     Dates: start: 201603
  3. SENDOXAN [Suspect]
     Active Substance: CYCLOPHOSPHAMIDE
     Dosage: 1206 MG, TREATED EVERY THREE WEEKS
     Route: 065
     Dates: start: 201410
  4. ZOLADEX [Suspect]
     Active Substance: GOSERELIN ACETATE
     Route: 058
     Dates: start: 201504
  5. DOCETAXEL. [Suspect]
     Active Substance: DOCETAXEL
     Dosage: 201 MG UNK
     Route: 042
     Dates: start: 201501

REACTIONS (1)
  - Gait disturbance [Not Recovered/Not Resolved]

NARRATIVE: CASE EVENT DATE: 20150111
